FAERS Safety Report 20259360 (Version 2)
Quarter: 2022Q1

REPORT INFORMATION
  Report Type: Spontaneous
  Country: US (occurrence: US)
  Receive Date: 20211230
  Receipt Date: 20220304
  Transmission Date: 20220424
  Serious: Yes (Hospitalization)
  Sender: FDA-Public Use
  Company Number: US-ALXN-A202114293

PATIENT
  Sex: Female

DRUGS (1)
  1. SOLIRIS [Suspect]
     Active Substance: ECULIZUMAB
     Indication: Neuromyelitis optica spectrum disorder
     Dosage: 900 MG, QW (ONCE WEEKLY FOR 4 WEEKS THEN BEGIN MAINTENANCE DOSE A WEEK LATER)
     Route: 042
     Dates: start: 202112

REACTIONS (1)
  - Suspected COVID-19 [Unknown]
